FAERS Safety Report 7944753-4 (Version None)
Quarter: 2011Q4

REPORT INFORMATION
  Report Type: 
  Country: None (occurrence: None)
  Receive Date: 20111122
  Receipt Date: 20110801
  Transmission Date: 20120403
  Serious: No
  Sender: FDA-Public Use
  Company Number: PHHY2011US64885

PATIENT
  Age: 55 Year
  Sex: Female

DRUGS (4)
  1. BACLOFEN [Concomitant]
  2. CELEBREX [Concomitant]
  3. GILENYA [Suspect]
     Indication: MULTIPLE SCLEROSIS
     Dosage: 0.5 MG, QD, ORAL
     Route: 048
     Dates: start: 20110701, end: 20110715
  4. TRAMADOL HCL [Concomitant]

REACTIONS (9)
  - ERYTHEMA [None]
  - PRURITUS [None]
  - EYE PRURITUS [None]
  - HEADACHE [None]
  - DIARRHOEA [None]
  - NASAL CONGESTION [None]
  - ABDOMINAL PAIN [None]
  - EAR DISCOMFORT [None]
  - COUGH [None]
